FAERS Safety Report 9664165 (Version 1)
Quarter: 2013Q4

REPORT INFORMATION
  Report Type: Spontaneous
  Country: US (occurrence: None)
  Receive Date: 20131030
  Receipt Date: 20131030
  Transmission Date: 20140711
  Serious: Yes (Disabling)
  Sender: FDA-Public Use
  Company Number: None

PATIENT
  Age: 41 None
  Sex: Female

DRUGS (5)
  1. LAMOTRIGINE [Suspect]
     Indication: MIGRAINE
     Route: 048
     Dates: start: 2005, end: 2009
  2. LAMOTRIGINE [Suspect]
     Indication: DEPRESSION
     Route: 048
     Dates: start: 2005, end: 2009
  3. BUPROPION [Concomitant]
  4. PROZAC [Concomitant]
  5. ABILITY [Concomitant]

REACTIONS (4)
  - Migraine [None]
  - Feeling abnormal [None]
  - Activities of daily living impaired [None]
  - Product substitution issue [None]
